FAERS Safety Report 19814982 (Version 1)
Quarter: 2021Q3

REPORT INFORMATION
  Report Type: Spontaneous
  Country: US (occurrence: US)
  Receive Date: 20210907
  Receipt Date: 20210907
  Transmission Date: 20211014
  Serious: No
  Sender: FDA-Public Use
  Company Number: None

PATIENT
  Age: 48 Year
  Sex: Female

DRUGS (1)
  1. MAVENCLAD [Suspect]
     Active Substance: CLADRIBINE
     Indication: MULTIPLE SCLEROSIS
     Route: 048
     Dates: start: 202108

REACTIONS (5)
  - Vomiting [None]
  - Influenza like illness [None]
  - Sleep disorder [None]
  - Rhinorrhoea [None]
  - Partial seizures [None]

NARRATIVE: CASE EVENT DATE: 202108
